FAERS Safety Report 16915587 (Version 1)
Quarter: 2019Q4

REPORT INFORMATION
  Report Type: Spontaneous
  Country: US (occurrence: US)
  Receive Date: 20191013
  Receipt Date: 20191013
  Transmission Date: 20200122
  Serious: Yes (Other)
  Sender: FDA-Public Use
  Company Number: None

PATIENT
  Age: 56 Year
  Sex: Male
  Weight: 97.65 kg

DRUGS (17)
  1. ZOLPIDEM [Concomitant]
     Active Substance: ZOLPIDEM TARTRATE
  2. LYRICA [Concomitant]
     Active Substance: PREGABALIN
  3. PROBIOTIC [Concomitant]
     Active Substance: PROBIOTICS NOS
  4. TUMERIC [Concomitant]
     Active Substance: HERBALS\TURMERIC
  5. BACLOFEN. [Concomitant]
     Active Substance: BACLOFEN
  6. CYMBALTA [Concomitant]
     Active Substance: DULOXETINE HYDROCHLORIDE
  7. QUININE [Concomitant]
     Active Substance: QUININE
  8. GABAPENTIN. [Concomitant]
     Active Substance: GABAPENTIN
  9. CURCUMIN [Concomitant]
     Active Substance: CURCUMIN
  10. FENOFIBRATE. [Suspect]
     Active Substance: FENOFIBRATE
     Indication: BLOOD TRIGLYCERIDES INCREASED
     Dosage: ?          QUANTITY:1 TABLET(S);?
     Route: 048
     Dates: start: 20180924, end: 20191001
  11. TESTOSTERONE. [Concomitant]
     Active Substance: TESTOSTERONE
  12. LINZESS [Concomitant]
     Active Substance: LINACLOTIDE
  13. AMBIEN [Concomitant]
     Active Substance: ZOLPIDEM TARTRATE
  14. VITAMIN D [Concomitant]
     Active Substance: VITAMIN D NOS
  15. COPAXONE [Concomitant]
     Active Substance: GLATIRAMER ACETATE
  16. BOTOX [Concomitant]
     Active Substance: ONABOTULINUMTOXINA
  17. B VITAMIN [Concomitant]

REACTIONS (1)
  - Blood creatine abnormal [None]

NARRATIVE: CASE EVENT DATE: 20190923
